FAERS Safety Report 24979232 (Version 2)
Quarter: 2025Q1

REPORT INFORMATION
  Report Type: Report from Study
  Country: US (occurrence: US)
  Receive Date: 20250218
  Receipt Date: 20250226
  Transmission Date: 20250409
  Serious: No
  Sender: BIOVITRUM
  Company Number: US-BIOVITRUM-2025-US-002152

PATIENT
  Age: 57 Year
  Sex: Female

DRUGS (1)
  1. KINERET [Suspect]
     Active Substance: ANAKINRA
     Indication: Autoinflammatory disease
     Route: 058
     Dates: start: 20250203

REACTIONS (10)
  - Rash [Unknown]
  - Rash pruritic [Unknown]
  - Pain [Unknown]
  - Off label use [Not Recovered/Not Resolved]
  - Headache [Unknown]
  - Dizziness [Unknown]
  - Oral mucosal blistering [Unknown]
  - Blister [Unknown]
  - Pyrexia [Unknown]
  - Throat irritation [Unknown]

NARRATIVE: CASE EVENT DATE: 20250203
